FAERS Safety Report 17508888 (Version 1)
Quarter: 2020Q1

REPORT INFORMATION
  Report Type: Spontaneous
  Country: US (occurrence: US)
  Receive Date: 20200305
  Receipt Date: 20200305
  Transmission Date: 20200409
  Serious: Yes (Other)
  Sender: FDA-Public Use
  Company Number: None

PATIENT
  Age: 71 Year
  Sex: Female
  Weight: 98.3 kg

DRUGS (10)
  1. BUPROPION 150 MG DAILY [Concomitant]
  2. FUROSEMIDE 20 MG DAILY [Concomitant]
  3. CARVEDILOL 3.125 MG BID [Concomitant]
  4. POTASSIUM CHLORIDE 10 MG BID [Concomitant]
  5. DULOXETINE 60 MG BID [Concomitant]
  6. DEPAKOTE 250 MG DAILY 500 MG NIGHTLY [Concomitant]
  7. ATORVASTATIN 40 MG DAILY [Concomitant]
  8. LISINOPRIL 20 MG DAILY [Concomitant]
  9. TRAZODONE 100 MG NIGHTLY [Concomitant]
  10. GABAPENTIN. [Suspect]
     Active Substance: GABAPENTIN
     Indication: NEUROPATHY PERIPHERAL
     Route: 048
     Dates: start: 20200115, end: 20200212

REACTIONS (3)
  - Stress urinary incontinence [None]
  - Balance disorder [None]
  - Aphasia [None]

NARRATIVE: CASE EVENT DATE: 20200115
